FAERS Safety Report 18855705 (Version 1)
Quarter: 2021Q1

REPORT INFORMATION
  Report Type: Spontaneous
  Country: BR (occurrence: BR)
  Receive Date: 20210205
  Receipt Date: 20210205
  Transmission Date: 20210420
  Serious: Yes (Other)
  Sender: FDA-Public Use
  Company Number: BR-009507513-2102BRA000487

PATIENT
  Sex: Female

DRUGS (2)
  1. LOSARTAN POTASSIUM. [Suspect]
     Active Substance: LOSARTAN POTASSIUM
     Dosage: UNK
     Route: 064
  2. CERAZETTE (DESOGESTREL) [Suspect]
     Active Substance: DESOGESTREL
     Dosage: UNK
     Route: 063

REACTIONS (8)
  - Dust allergy [Recovering/Resolving]
  - Haematochezia [Recovering/Resolving]
  - Drug hypersensitivity [Recovering/Resolving]
  - Mucous stools [Recovering/Resolving]
  - Milk allergy [Recovering/Resolving]
  - Exposure via breast milk [Unknown]
  - Foetal exposure during pregnancy [Unknown]
  - Foetal distress syndrome [Recovering/Resolving]
